FAERS Safety Report 22063654 (Version 1)
Quarter: 2023Q1

REPORT INFORMATION
  Report Type: Spontaneous
  Country: CA (occurrence: CA)
  Receive Date: 20230306
  Receipt Date: 20230306
  Transmission Date: 20230417
  Serious: Yes (Hospitalization, Disabling)
  Sender: FDA-Public Use
  Company Number: None

PATIENT
  Age: 83 Year
  Sex: Male

DRUGS (13)
  1. ATORVASTATIN [Suspect]
     Active Substance: ATORVASTATIN
     Indication: Product used for unknown indication
  2. ALTACE [Concomitant]
     Active Substance: RAMIPRIL
  3. ASPIRIN [Concomitant]
     Active Substance: ASPIRIN
     Route: 065
  4. CITALOPRAM [Concomitant]
     Active Substance: CITALOPRAM HYDROBROMIDE
  5. ELIQUIS [Concomitant]
     Active Substance: APIXABAN
  6. HYDROXYUREA [Concomitant]
     Active Substance: HYDROXYUREA
  7. METOPROLOL [Concomitant]
     Active Substance: METOPROLOL
     Route: 065
  8. MIRABEGRON [Concomitant]
     Active Substance: MIRABEGRON
     Dosage: TABLET (EXTENDED- RELEASE)
  9. NITROGLYCERIN [Concomitant]
     Active Substance: NITROGLYCERIN
     Dosage: SPRAY (NOT INHALATION)
  10. SYNTHROID [Concomitant]
     Active Substance: LEVOTHYROXINE SODIUM
  11. TAMSULOSIN [Concomitant]
     Active Substance: TAMSULOSIN
  12. VITAMIN C [Concomitant]
     Active Substance: ASCORBIC ACID
  13. VITAMIN D [Concomitant]
     Active Substance: VITAMIN D NOS

REACTIONS (5)
  - Asthenia [Unknown]
  - Dysstasia [Unknown]
  - Fall [Unknown]
  - Musculoskeletal stiffness [Unknown]
  - Pain [Unknown]
